FAERS Safety Report 10863148 (Version 2)
Quarter: 2015Q1

REPORT INFORMATION
  Report Type: Report from Study
  Country: US (occurrence: US)
  Receive Date: 20150224
  Receipt Date: 20150326
  Transmission Date: 20150721
  Serious: Yes (Hospitalization)
  Sender: FDA-Public Use
  Company Number: US-BAYER-2014-186065

PATIENT
  Age: 88 Year
  Sex: Female

DRUGS (2)
  1. STIVARGA [Suspect]
     Active Substance: REGORAFENIB
     Indication: COLON CANCER
     Dosage: 4 TABLETS EVERY DAY ON DAYS 1 THROUGH 21 EVERY 28 DAYS
     Route: 048
  2. STIVARGA [Suspect]
     Active Substance: REGORAFENIB
     Indication: COLON CANCER
     Dosage: 1 TABLET EVERY DAY ON DAYS 1-21
     Route: 048
     Dates: start: 20141201, end: 20150312

REACTIONS (4)
  - Malaise [Not Recovered/Not Resolved]
  - Drug intolerance [Recovered/Resolved]
  - Drug ineffective [None]
  - Cerebrovascular accident [Not Recovered/Not Resolved]

NARRATIVE: CASE EVENT DATE: 20150312
